FAERS Safety Report 10573610 (Version 1)
Quarter: 2014Q4

REPORT INFORMATION
  Report Type: Spontaneous
  Country: US (occurrence: None)
  Receive Date: 20141030
  Receipt Date: 20141030
  Transmission Date: 20150529
  Serious: Yes (Other)
  Sender: FDA-Public Use
  Company Number: PHEH2014US016533

PATIENT
  Age: 71 Year
  Sex: Female

DRUGS (3)
  1. RECLAST [Suspect]
     Active Substance: ZOLEDRONIC ACID
     Dosage: 5  MG, UNK , INTRAVENOUS
     Route: 042
     Dates: start: 20140428
  2. VITAMIN D (ERGOCALCIFEROL) [Concomitant]
     Active Substance: ERGOCALCIFEROL
  3. CALCIUM [Concomitant]
     Active Substance: CALCIUM

REACTIONS (8)
  - Lip swelling [None]
  - Renal disorder [None]
  - Swollen tongue [None]
  - Laryngeal disorder [None]
  - Angioedema [None]
  - Bladder disorder [None]
  - Throat lesion [None]
  - Swelling face [None]
